FAERS Safety Report 8502903-5 (Version None)
Quarter: 2012Q3

REPORT INFORMATION
  Report Type: 
  Country: None (occurrence: None)
  Receive Date: 20120711
  Receipt Date: 20120703
  Transmission Date: 20120928
  Serious: Yes (Hospitalization, Other)
  Sender: FDA-Public Use
  Company Number: FR-SANOFI-AVENTIS-2012SA047919

PATIENT
  Age: 25 Year
  Sex: Female

DRUGS (11)
  1. CYCLOSPORINE [Interacting]
     Indication: IMMUNOSUPPRESSION
     Route: 065
  2. RIFAMPICIN [Interacting]
     Route: 065
  3. OFLOXACIN [Concomitant]
     Indication: PULMONARY TUBERCULOSIS
  4. OFLOXACIN [Concomitant]
  5. AZATHIOPRINE [Interacting]
     Indication: IMMUNOSUPPRESSION
     Route: 065
  6. RIFAMPICIN [Concomitant]
  7. ETHAMBUTOL HYDROCHLORIDE [Concomitant]
     Indication: PULMONARY TUBERCULOSIS
  8. RIFAMPICIN [Interacting]
     Indication: PULMONARY TUBERCULOSIS
     Route: 065
  9. PREDNISOLONE [Interacting]
     Indication: IMMUNOSUPPRESSION
     Route: 065
  10. PYRAZINAMIDE [Suspect]
     Indication: PULMONARY TUBERCULOSIS
     Route: 065
  11. ISONIAZID [Concomitant]
     Indication: PULMONARY TUBERCULOSIS

REACTIONS (6)
  - JAUNDICE [None]
  - ACUTE HEPATIC FAILURE [None]
  - LIVER TRANSPLANT REJECTION [None]
  - DRUG INTERACTION [None]
  - ALANINE AMINOTRANSFERASE INCREASED [None]
  - HEPATIC ENCEPHALOPATHY [None]
